FAERS Safety Report 23432595 (Version 1)
Quarter: 2024Q1

REPORT INFORMATION
  Report Type: Spontaneous
  Country: GB (occurrence: GB)
  Receive Date: 20240123
  Receipt Date: 20240123
  Transmission Date: 20240409
  Serious: Yes (Disabling, Other)
  Sender: FDA-Public Use
  Company Number: None

PATIENT

DRUGS (7)
  1. ATORVASTATIN [Suspect]
     Active Substance: ATORVASTATIN
     Indication: Product used for unknown indication
     Dosage: TEVA ATORVASTATIN
     Route: 065
     Dates: start: 202210, end: 20230113
  2. SOLIFENACIN [Concomitant]
     Active Substance: SOLIFENACIN
  3. ALBUTEROL [Concomitant]
     Active Substance: ALBUTEROL
     Route: 055
  4. CALCIUM CARBONATE\CHOLECALCIFEROL [Concomitant]
     Active Substance: CALCIUM CARBONATE\CHOLECALCIFEROL
  5. LATANOPROST [Concomitant]
     Active Substance: LATANOPROST
  6. BRINZOLAMIDE [Concomitant]
     Active Substance: BRINZOLAMIDE
  7. QVAR [Concomitant]
     Active Substance: BECLOMETHASONE DIPROPIONATE
     Dosage: QVAR INHALER
     Route: 055

REACTIONS (10)
  - Pain in extremity [Recovering/Resolving]
  - Body height decreased [Unknown]
  - Neck pain [Unknown]
  - Pain [Recovering/Resolving]
  - Joint stiffness [Recovering/Resolving]
  - Liver injury [Unknown]
  - Nausea [Unknown]
  - Abnormal loss of weight [Unknown]
  - Arthralgia [Recovering/Resolving]
  - Asthenia [Unknown]
